FAERS Safety Report 7967439-9 (Version None)
Quarter: 2011Q4

REPORT INFORMATION
  Report Type: 
  Country: None (occurrence: None)
  Receive Date: 20111209
  Receipt Date: 20111202
  Transmission Date: 20120403
  Serious: Yes (Hospitalization, Disabling)
  Sender: FDA-Public Use
  Company Number: CH-B.I. PHARMACEUTICALS,INC./RIDGEFIELD-2011-AP-00708SI

PATIENT
  Sex: Male
  Weight: 91 kg

DRUGS (1)
  1. IPRATROPIUM BROMIDE [Suspect]
     Indication: PNEUMONIA
     Route: 055
     Dates: start: 20111120, end: 20111128

REACTIONS (2)
  - GINGIVAL DISCOLOURATION [None]
  - TOOTH DISCOLOURATION [None]
